FAERS Safety Report 19077603 (Version 2)
Quarter: 2021Q2

REPORT INFORMATION
  Report Type: Report from Study
  Country: CA (occurrence: CA)
  Receive Date: 20210331
  Receipt Date: 20210603
  Transmission Date: 20210717
  Serious: Yes (Hospitalization)
  Sender: FDA-Public Use
  Company Number: CA-JNJFOC-20201237370

PATIENT
  Age: 49 Year
  Sex: Female
  Weight: 74 kg

DRUGS (2)
  1. REMICADE [Suspect]
     Active Substance: INFLIXIMAB
     Route: 042
     Dates: start: 20110929
  2. REMICADE [Suspect]
     Active Substance: INFLIXIMAB
     Indication: CROHN^S DISEASE
     Dosage: INFUSION GIVEN ON 06/11/2020
     Route: 042
     Dates: start: 20110929

REACTIONS (7)
  - Poor quality sleep [Unknown]
  - Feeling abnormal [Unknown]
  - Anxiety [Unknown]
  - Intestinal resection [Recovering/Resolving]
  - Fatigue [Unknown]
  - Intestinal obstruction [Recovered/Resolved]
  - Asthenia [Unknown]

NARRATIVE: CASE EVENT DATE: 20201202
